FAERS Safety Report 5420714-4 (Version None)
Quarter: 2007Q3

REPORT INFORMATION
  Report Type: 
  Country: None (occurrence: None)
  Receive Date: 20070821
  Receipt Date: 20070817
  Transmission Date: 20080115
  Serious: Yes (Death)
  Sender: FDA-Public Use
  Company Number: GBWYE188817AUG07

PATIENT

DRUGS (2)
  1. GEMTUZUMAB OZOGAMICIN [Suspect]
     Dosage: UNKNOWN
     Dates: start: 20070813, end: 20070814
  2. CYTARABINE [Suspect]
     Dosage: UNKNOWN
     Dates: start: 20070813, end: 20070814

REACTIONS (1)
  - NEUTROPENIC SEPSIS [None]
